FAERS Safety Report 23521135 (Version 1)
Quarter: 2024Q1

REPORT INFORMATION
  Report Type: 
  Country: None (occurrence: None)
  Receive Date: 20240214
  Receipt Date: 20240214
  Transmission Date: 20240410
  Serious: No
  Sender: FDA-Public Use
  Company Number: CA-ROCHE-3320309

PATIENT

DRUGS (9)
  1. RITUXIMAB [Suspect]
     Active Substance: RITUXIMAB
  2. RITUXIMAB [Suspect]
     Active Substance: RITUXIMAB
  3. RITUXIMAB [Suspect]
     Active Substance: RITUXIMAB
  4. RITUXIMAB [Suspect]
     Active Substance: RITUXIMAB
  5. ACETAMINOPHEN [Concomitant]
     Active Substance: ACETAMINOPHEN
  6. DESOXIMETASONE [Concomitant]
     Active Substance: DESOXIMETASONE
  7. DIPHENHYDRAMINE HYDROCHLORIDE [Concomitant]
     Active Substance: DIPHENHYDRAMINE HYDROCHLORIDE
  8. METHYLPREDNISOLONE [Concomitant]
     Active Substance: METHYLPREDNISOLONE
  9. METHYLPREDNISOLONE [Concomitant]
     Active Substance: METHYLPREDNISOLONE

REACTIONS (38)
  - Anxiety [None]
  - Blood pressure abnormal [None]
  - Chills [None]
  - Decreased appetite [None]
  - Diarrhoea [None]
  - Ear discomfort [None]
  - Erythema [None]
  - Gastroenteritis [None]
  - Hot flush [None]
  - Illness [None]
  - Loss of personal independence in daily activities [None]
  - Inappropriate schedule of product administration [None]
  - Joint injury [None]
  - Ligament sprain [None]
  - Nausea [None]
  - Paraesthesia [None]
  - Red blood cell sedimentation rate increased [None]
  - Arthralgia [None]
  - Arthritis [None]
  - Cough [None]
  - Dizziness [None]
  - Dyspnoea [None]
  - Headache [None]
  - Infection [None]
  - Influenza like illness [None]
  - Loss of personal independence in daily activities [None]
  - Oropharyngeal pain [None]
  - Osteoarthritis [None]
  - Rhinitis [None]
  - Sinusitis [None]
  - Sputum discoloured [None]
  - Asthma [None]
  - COVID-19 [None]
  - Dermatitis acneiform [None]
  - Quality of life decreased [None]
  - Arthritis bacterial [None]
  - Drug ineffective [None]
  - Skin lesion [None]
